FAERS Safety Report 17113949 (Version 2)
Quarter: 2019Q4

REPORT INFORMATION
  Report Type: Spontaneous
  Country: NL (occurrence: NL)
  Receive Date: 20191205
  Receipt Date: 20191207
  Transmission Date: 20200122
  Serious: Yes (Hospitalization)
  Sender: FDA-Public Use
  Company Number: NL-TEVA-2019-NL-1146596

PATIENT
  Age: 85 Year
  Sex: Female
  Weight: 64.2 kg

DRUGS (6)
  1. ZOLPIDEMTARTRAAT 15 MG [Concomitant]
     Dosage: 1DD
  2. SOTALOL TABLET, 80 MG (MILLIGRAM)SOTALOL TABLET 80MG [Suspect]
     Active Substance: SOTALOL
     Indication: ATRIAL FIBRILLATION
     Dosage: 2
     Route: 065
     Dates: start: 2009, end: 20191101
  3. LOSARTAN KALIUM PCH TABLET 25 MG [Concomitant]
     Dosage: 1DD
  4. SPIRONOLACTON MYLAN 25 MG [Concomitant]
     Active Substance: SPIRONOLACTONE
     Dosage: 1DD
  5. COLECALCIFEROL 5600 IE ORAAL [Concomitant]
     Route: 048
  6. OMEPRAZOL MYLAN 40 MG [Concomitant]
     Dosage: 1DD

REACTIONS (1)
  - Cardiac arrest [Recovered/Resolved]

NARRATIVE: CASE EVENT DATE: 20191101
